FAERS Safety Report 13701348 (Version 1)
Quarter: 2017Q2

REPORT INFORMATION
  Report Type: Report from Study
  Country: US (occurrence: US)
  Receive Date: 20170629
  Receipt Date: 20170629
  Transmission Date: 20170830
  Serious: Yes (Hospitalization, Other)
  Sender: FDA-Public Use
  Company Number: US-TEVA-780419USA

PATIENT
  Sex: Female

DRUGS (6)
  1. FUROSEMIDE. [Concomitant]
     Active Substance: FUROSEMIDE
  2. HUMALOG [Concomitant]
     Active Substance: INSULIN LISPRO
  3. LOSARTAN. [Concomitant]
     Active Substance: LOSARTAN
  4. VITAMIN D [Concomitant]
     Active Substance: CHOLECALCIFEROL
  5. LEVEMIR [Concomitant]
     Active Substance: INSULIN DETEMIR
  6. COPAXONE [Suspect]
     Active Substance: GLATIRAMER ACETATE
     Indication: MULTIPLE SCLEROSIS
     Route: 058
     Dates: start: 20150815

REACTIONS (3)
  - Upper limb fracture [Not Recovered/Not Resolved]
  - Multiple sclerosis relapse [Not Recovered/Not Resolved]
  - Fall [Not Recovered/Not Resolved]
